FAERS Safety Report 8283504-3 (Version None)
Quarter: 2012Q2

REPORT INFORMATION
  Report Type: 
  Country: None (occurrence: None)
  Receive Date: 20120413
  Receipt Date: 20120411
  Transmission Date: 20120825
  Serious: Yes (Hospitalization)
  Sender: FDA-Public Use
  Company Number: PHHY2012EE030446

PATIENT
  Sex: Male
  Weight: 109 kg

DRUGS (5)
  1. FLUOROURACIL [Suspect]
     Indication: COLON CANCER
     Dosage: 1200 MG/M2, UNK
     Route: 042
     Dates: start: 20120217, end: 20120219
  2. ZANTAC [Concomitant]
     Dosage: 3 MG, UNK
     Dates: start: 20120217, end: 20120219
  3. AMLODIPINE [Concomitant]
     Dosage: 3 MG, UNK
     Route: 048
     Dates: start: 20120217, end: 20120219
  4. MICARDIS HCT [Concomitant]
     Route: 048
  5. METOCLOPRAMIDE [Concomitant]
     Dosage: 20 MG, UNK
     Route: 048
     Dates: start: 20120217, end: 20120219

REACTIONS (3)
  - BLOOD PRESSURE INCREASED [None]
  - ASTHENIA [None]
  - CHEST PAIN [None]
